FAERS Safety Report 25307351 (Version 1)
Quarter: 2025Q2

REPORT INFORMATION
  Report Type: Spontaneous
  Country: US (occurrence: US)
  Receive Date: 20250513
  Receipt Date: 20250513
  Transmission Date: 20250717
  Serious: Yes (Hospitalization, Other)
  Sender: DOMPE FARMACEUTICI
  Company Number: US-FARMAPROD-202505-1488

PATIENT
  Sex: Female

DRUGS (15)
  1. OXERVATE [Suspect]
     Active Substance: CENEGERMIN-BKBJ
     Indication: Neurotrophic keratopathy
     Route: 047
     Dates: start: 20231102, end: 20231227
  2. OXERVATE [Suspect]
     Active Substance: CENEGERMIN-BKBJ
     Route: 047
     Dates: start: 20250220
  3. HUMALOG [Concomitant]
     Active Substance: INSULIN LISPRO
  4. VITAMIN D3 [Concomitant]
     Active Substance: CHOLECALCIFEROL
  5. PYRIDOXINE [Concomitant]
     Active Substance: PYRIDOXINE
  6. LEVOTHYROXINE SODIUM [Concomitant]
     Active Substance: LEVOTHYROXINE SODIUM
  7. VITAMIN B12 [Concomitant]
     Active Substance: CYANOCOBALAMIN
  8. ASPIRIN [Concomitant]
     Active Substance: ASPIRIN
  9. LOSARTAN POTASSIUM [Concomitant]
     Active Substance: LOSARTAN POTASSIUM
  10. HYDRALAZINE HCL [Concomitant]
     Active Substance: HYDRALAZINE HYDROCHLORIDE
  11. FUROSEMIDE [Concomitant]
     Active Substance: FUROSEMIDE
  12. ELIQUIS [Concomitant]
     Active Substance: APIXABAN
  13. DILTIAZEM [Concomitant]
     Active Substance: DILTIAZEM
  14. ATORVASTATIN CALCIUM [Concomitant]
     Active Substance: ATORVASTATIN CALCIUM
  15. ATENOLOL [Concomitant]
     Active Substance: ATENOLOL

REACTIONS (1)
  - Myocardial infarction [Recovering/Resolving]
